FAERS Safety Report 5303282-7 (Version None)
Quarter: 2007Q2

REPORT INFORMATION
  Report Type: 
  Country: None (occurrence: None)
  Receive Date: 20070420
  Receipt Date: 20070417
  Transmission Date: 20071010
  Serious: Yes (Other)
  Sender: FDA-Public Use
  Company Number: 2007SP005987

PATIENT
  Age: 50 Year
  Sex: Female

DRUGS (4)
  1. ADVAIR DISKUS 100/50 [Suspect]
     Indication: ASTHMA
     Route: 055
     Dates: start: 20060907, end: 20070330
  2. SALBUTAMOL [Concomitant]
  3. TRIOVAL [Concomitant]
     Dates: start: 20070105, end: 20070128
  4. CETIRIZINE HCL [Concomitant]
     Dates: start: 20070105, end: 20070128

REACTIONS (3)
  - EYE DISORDER [None]
  - LENTICULAR OPACITIES [None]
  - VISUAL ACUITY REDUCED [None]
